FAERS Safety Report 8558245-5 (Version None)
Quarter: 2012Q3

REPORT INFORMATION
  Report Type: 
  Country: None (occurrence: None)
  Receive Date: 20120801
  Receipt Date: 20120730
  Transmission Date: 20120928
  Serious: Yes (Hospitalization)
  Sender: FDA-Public Use
  Company Number: PHHY2012GB058699

PATIENT
  Age: 51 Year
  Sex: Male

DRUGS (5)
  1. GLIMEPIRIDE [Concomitant]
  2. METFORMIN HYDROCHLORIDE [Concomitant]
  3. MIRTAZAPINE [Suspect]
     Indication: DEPRESSION
     Dosage: 30 MG, UNK
     Route: 048
     Dates: start: 20110518
  4. SIMVASTATIN [Concomitant]
  5. SERTRALINE HYDROCHLORIDE [Concomitant]

REACTIONS (5)
  - CONFUSIONAL STATE [None]
  - ENCEPHALOPATHY [None]
  - AGITATION [None]
  - NEUROLEPTIC MALIGNANT SYNDROME [None]
  - CONVULSION [None]
